FAERS Safety Report 9922829 (Version 2)
Quarter: 2014Q1

REPORT INFORMATION
  Report Type: Spontaneous
  Country: US (occurrence: US)
  Receive Date: 20140225
  Receipt Date: 20140227
  Transmission Date: 20141002
  Serious: Yes (Hospitalization, Other)
  Sender: FDA-Public Use
  Company Number: US-GILEAD-2014-0095092

PATIENT
  Sex: Female

DRUGS (9)
  1. LETAIRIS [Suspect]
     Indication: PULMONARY ARTERIAL HYPERTENSION
     Dosage: 5 MG, QD
     Route: 065
     Dates: start: 20130525, end: 20140206
  2. PAROXETINE [Concomitant]
  3. NEXIUM                             /01479302/ [Concomitant]
  4. FUROSEMIDE [Concomitant]
  5. WARFARIN [Concomitant]
  6. CARVEDILOL [Concomitant]
  7. HYDRALAZINE [Concomitant]
  8. XOPENEX [Concomitant]
  9. POTASSIUM [Concomitant]

REACTIONS (2)
  - Cardiac failure congestive [Unknown]
  - Pulmonary oedema [Unknown]
